FAERS Safety Report 4815648-X (Version None)
Quarter: 2005Q4

REPORT INFORMATION
  Report Type: 
  Country: None (occurrence: None)
  Receive Date: 20051026
  Receipt Date: 20051017
  Transmission Date: 20060501
  Serious: Yes (Hospitalization, Other)
  Sender: FDA-Public Use
  Company Number: 2005120028

PATIENT
  Age: 68 Year
  Sex: Female
  Weight: 90.7194 kg

DRUGS (2)
  1. BEXTRA [Suspect]
     Indication: ARTHRITIS
     Dosage: 10 MG (10 MG, 1 IN 1 D), ORAL
     Route: 048
  2. TOPROL (METOPROLOL) [Concomitant]

REACTIONS (4)
  - ATRIAL FIBRILLATION [None]
  - EMBOLISM [None]
  - INTESTINAL HAEMORRHAGE [None]
  - MYOCARDIAL INFARCTION [None]
